FAERS Safety Report 9017365 (Version 1)
Quarter: 2013Q1

REPORT INFORMATION
  Report Type: Spontaneous
  Country: US (occurrence: US)
  Receive Date: 20130117
  Receipt Date: 20130117
  Transmission Date: 20140127
  Serious: No
  Sender: FDA-Public Use
  Company Number: US-PFIZER INC-2013020627

PATIENT
  Age: 94 Year
  Sex: Male
  Weight: 58.96 kg

DRUGS (2)
  1. GABAPENTIN [Suspect]
     Indication: PHANTOM PAIN
     Dosage: UNK, 3X/DAY
  2. TYLENOL [Suspect]
     Indication: PHANTOM PAIN
     Dosage: 500 MG, 2X/DAY

REACTIONS (1)
  - Drug ineffective [Not Recovered/Not Resolved]
